FAERS Safety Report 14026568 (Version 6)
Quarter: 2019Q3

REPORT INFORMATION
  Report Type: Spontaneous
  Country: JP (occurrence: JP)
  Receive Date: 20170929
  Receipt Date: 20190910
  Transmission Date: 20191004
  Serious: Yes (Hospitalization, Other)
  Sender: FDA-Public Use
  Company Number: JP-BRISTOL-MYERS SQUIBB COMPANY-BMS-2017-086103

PATIENT
  Age: 71 Year
  Sex: Male
  Weight: 47 kg

DRUGS (2)
  1. ORENCIA [Suspect]
     Active Substance: ABATACEPT
     Indication: PRODUCT USED FOR UNKNOWN INDICATION
     Dosage: UNK
     Route: 041
     Dates: start: 20160104
  2. ORENCIA [Suspect]
     Active Substance: ABATACEPT
     Indication: PRODUCT USED FOR UNKNOWN INDICATION
     Route: 065

REACTIONS (8)
  - Injection site pain [Unknown]
  - Hypoaesthesia [Unknown]
  - Bone disorder [Unknown]
  - Wrist fracture [Unknown]
  - Lumbar vertebral fracture [Unknown]
  - Injection site bruising [Unknown]
  - Osteoporosis [Unknown]
  - Rheumatoid arthritis [Unknown]
